FAERS Safety Report 8767154 (Version 1)
Quarter: 2012Q4

REPORT INFORMATION
  Report Type: 
  Country: US (occurrence: US)
  Receive Date: 20120904
  Receipt Date: 20120904
  Transmission Date: 20130627
  Serious: Yes (Death, Other)
  Sender: FDA-Public Use
  Company Number: US-JNJFOC-20120900052

PATIENT

DRUGS (3)
  1. NUCYNTA ER [Suspect]
     Indication: PAIN
     Dosage: daily
     Route: 048
  2. OXYCODONE [Concomitant]
     Indication: PAIN
     Route: 065
  3. OXYCONTIN [Concomitant]
     Indication: PAIN
     Route: 065

REACTIONS (3)
  - Death [Fatal]
  - Respiratory depression [Unknown]
  - Wrong technique in drug usage process [Unknown]
